FAERS Safety Report 10131397 (Version 2)
Quarter: 2014Q2

REPORT INFORMATION
  Report Type: Spontaneous
  Country: JP (occurrence: JP)
  Receive Date: 20140428
  Receipt Date: 20140513
  Transmission Date: 20141212
  Serious: Yes (Other)
  Sender: FDA-Public Use
  Company Number: PHHY2014JP050733

PATIENT
  Age: 42 Year
  Sex: Female

DRUGS (3)
  1. NEORAL [Suspect]
     Indication: VOGT-KOYANAGI-HARADA SYNDROME
     Dosage: 150 MG, DAILY
     Route: 048
     Dates: start: 20131010
  2. NEORAL [Suspect]
     Dosage: 100 MG, DAILY
     Route: 048
     Dates: start: 20131102
  3. NEORAL [Suspect]
     Dosage: 75 MG, DAILY
     Route: 048
     Dates: start: 20140208

REACTIONS (3)
  - Cartilage injury [Not Recovered/Not Resolved]
  - Meniscus injury [Not Recovered/Not Resolved]
  - Pain in extremity [Not Recovered/Not Resolved]
